FAERS Safety Report 9319772 (Version 1)
Quarter: 2013Q2

REPORT INFORMATION
  Report Type: Spontaneous
  Country: FR (occurrence: FR)
  Receive Date: 20130530
  Receipt Date: 20130530
  Transmission Date: 20140414
  Serious: Yes (Hospitalization)
  Sender: FDA-Public Use
  Company Number: FR-ABBOTT-13P-056-1094080-00

PATIENT
  Age: 44 Year
  Sex: Male

DRUGS (8)
  1. ALUVIA 200/50 [Suspect]
     Indication: HIV INFECTION
     Dates: start: 2011, end: 20130413
  2. ACICLOVIR [Suspect]
     Indication: ENCEPHALOPATHY
     Dates: start: 20130414, end: 20130416
  3. BACTRIM FORTE (SULFAMETHOXAZOLE,TRIMETHOPRIME) [Suspect]
     Indication: ANTIFUNGAL PROPHYLAXIS
     Route: 048
     Dates: start: 20130413, end: 20130424
  4. CLAFORAN [Suspect]
     Indication: ENCEPHALOPATHY
     Dates: start: 20130414, end: 20130416
  5. ESOMEPRAZOLE [Suspect]
     Indication: ULCER
     Dates: start: 20130413, end: 20130417
  6. ESOMEPRAZOLE [Suspect]
     Indication: PROPHYLAXIS
  7. KIVEXA [Suspect]
     Indication: HIV INFECTION
     Route: 048
     Dates: start: 2011, end: 20130413
  8. HEROIN [Suspect]
     Indication: PRODUCT USED FOR UNKNOWN INDICATION

REACTIONS (2)
  - Status epilepticus [Unknown]
  - Neutropenia [Not Recovered/Not Resolved]
